FAERS Safety Report 14900314 (Version 1)
Quarter: 2018Q2

REPORT INFORMATION
  Report Type: Spontaneous
  Country: US (occurrence: US)
  Receive Date: 20180516
  Receipt Date: 20180516
  Transmission Date: 20180711
  Serious: Yes (Death)
  Sender: FDA-Public Use
  Company Number: US-ROCHE-2124436

PATIENT
  Sex: Male

DRUGS (3)
  1. COTELLIC [Suspect]
     Active Substance: COBIMETINIB
     Indication: PRODUCT USED FOR UNKNOWN INDICATION
     Route: 065
  2. ZELBORAF [Suspect]
     Active Substance: VEMURAFENIB
     Indication: METASTASIS
     Dosage: UNKNOWN, DAILY
     Route: 065
     Dates: start: 20180109
  3. ZELBORAF [Suspect]
     Active Substance: VEMURAFENIB
     Dosage: 4 TAB
     Route: 048
     Dates: start: 20180108

REACTIONS (1)
  - Death [Fatal]
